FAERS Safety Report 9479331 (Version 1)
Quarter: 2013Q3

REPORT INFORMATION
  Report Type: Spontaneous
  Country: TW (occurrence: TW)
  Receive Date: 20130827
  Receipt Date: 20130827
  Transmission Date: 20140515
  Serious: Yes (Hospitalization, Other)
  Sender: FDA-Public Use
  Company Number: PHHY2013TW090749

PATIENT
  Age: 48 Year
  Sex: Male

DRUGS (3)
  1. MYCOPHENOLIC ACID [Suspect]
     Indication: IMMUNOSUPPRESSION
     Dosage: 4 DF, BID
  2. PREDNISOLONE SANDOZ [Suspect]
     Indication: IMMUNOSUPPRESSION
     Dosage: 10 MG, UNK
  3. TACROLIMUS [Suspect]
     Indication: IMMUNOSUPPRESSION
     Dosage: 2 MG, PER 12 H

REACTIONS (8)
  - Necrotising fasciitis [Unknown]
  - Escherichia infection [Unknown]
  - Pyrexia [Unknown]
  - Blister [Unknown]
  - Rash [Unknown]
  - Septic shock [Unknown]
  - Hypovolaemic shock [Unknown]
  - Pyuria [Unknown]
